FAERS Safety Report 11383049 (Version 3)
Quarter: 2015Q3

REPORT INFORMATION
  Report Type: Report from Study
  Country: DE (occurrence: DE)
  Receive Date: 20150814
  Receipt Date: 20150918
  Transmission Date: 20151125
  Serious: Yes (Hospitalization, Other)
  Sender: FDA-Public Use
  Company Number: DE-ABBVIE-15K-062-1441820-00

PATIENT
  Age: 22 Year
  Sex: Male
  Weight: 67 kg

DRUGS (2)
  1. HUMIRA [Suspect]
     Active Substance: ADALIMUMAB
     Indication: CROHN^S DISEASE
     Route: 058
  2. HUMIRA [Suspect]
     Active Substance: ADALIMUMAB
     Route: 058
     Dates: start: 20100127

REACTIONS (16)
  - Intestinal fibrosis [Recovering/Resolving]
  - Purulence [Recovering/Resolving]
  - Abscess intestinal [Recovering/Resolving]
  - Crohn^s disease [Recovering/Resolving]
  - Colitis ulcerative [Recovering/Resolving]
  - Peritonitis [Recovering/Resolving]
  - Gastrointestinal wall thickening [Recovering/Resolving]
  - Subileus [Recovering/Resolving]
  - Abscess intestinal [Recovered/Resolved]
  - Intestinal ulcer [Recovering/Resolving]
  - Impaired healing [Recovering/Resolving]
  - Peritoneal fibrosis [Recovering/Resolving]
  - Large intestinal stenosis [Recovering/Resolving]
  - Resection of rectum [Recovered/Resolved with Sequelae]
  - Rectal fissure [Recovering/Resolving]
  - Laboratory test abnormal [Recovering/Resolving]

NARRATIVE: CASE EVENT DATE: 2015
